FAERS Safety Report 24072668 (Version 1)
Quarter: 2024Q3

REPORT INFORMATION
  Report Type: Other
  Country: US (occurrence: US)
  Receive Date: 20240710
  Receipt Date: 20240710
  Transmission Date: 20241017
  Serious: Yes (Other)
  Sender: B BRAUN
  Company Number: US-B.Braun Medical Inc.-2158984

PATIENT
  Age: 78 Year
  Sex: Female

DRUGS (1)
  1. DEXTROSE\MAGNESIUM SULFATE [Suspect]
     Active Substance: DEXTROSE\MAGNESIUM SULFATE
     Indication: Hypomagnesaemia
     Route: 042

REACTIONS (2)
  - Drug dependence [Recovered/Resolved]
  - Off label use [Recovered/Resolved]
